FAERS Safety Report 5417005-4 (Version None)
Quarter: 2007Q3

REPORT INFORMATION
  Report Type: 
  Country: None (occurrence: None)
  Receive Date: 20070718
  Receipt Date: 20070420
  Transmission Date: 20080115
  Serious: Yes (Hospitalization, Other)
  Sender: FDA-Public Use
  Company Number: 2006059397

PATIENT
  Age: 54 Year
  Sex: Male
  Weight: 88.5 kg

DRUGS (4)
  1. CELEBREX [Suspect]
     Indication: JOINT SPRAIN
     Dosage: 200 MG (200 MG,1 IN 1 D)
     Dates: start: 20000415
  2. BEXTRA [Suspect]
     Indication: BACK PAIN
     Dosage: (10 MG,AS NECESSARY)
     Dates: start: 20020401
  3. BEXTRA [Suspect]
     Indication: MUSCULOSKELETAL PAIN
     Dosage: (10 MG,AS NECESSARY)
     Dates: start: 20020401
  4. VIOXX [Suspect]
     Indication: BACK INJURY
     Dosage: 25 MG (25 MG,1 IN 1 D)
     Dates: start: 20000918, end: 20000923

REACTIONS (1)
  - MYOCARDIAL INFARCTION [None]
